FAERS Safety Report 6497774-5 (Version None)
Quarter: 2009Q4

REPORT INFORMATION
  Report Type: 
  Country: None (occurrence: None)
  Receive Date: 20091215
  Receipt Date: 20091202
  Transmission Date: 20100525
  Serious: Yes (Other)
  Sender: FDA-Public Use
  Company Number: US-KINGPHARMUSA00001-K200901529

PATIENT
  Sex: Male

DRUGS (1)
  1. THROMBIN NOS [Suspect]
     Indication: VASCULAR PSEUDOANEURYSM
     Dosage: UNK , UNK

REACTIONS (1)
  - ANAPHYLACTIC REACTION [None]
